FAERS Safety Report 9233138 (Version 1)
Quarter: 2013Q1

REPORT INFORMATION
  Report Type: Spontaneous
  Country: US (occurrence: None)
  Receive Date: 20121031
  Receipt Date: 20121031
  Transmission Date: 20140127
  Serious: No
  Sender: FDA-Public Use
  Company Number: PHEH2012US014859

PATIENT
  Age: 56 Year
  Sex: Female

DRUGS (4)
  1. GILENYA [Suspect]
     Route: 048
     Dates: start: 20120504
  2. SERTRALINE (SERTRALINE) [Concomitant]
  3. AMLODIPINE (AMLODIPINE) [Concomitant]
  4. BUPROPION (BUPROPION) [Concomitant]

REACTIONS (2)
  - Aphonia [None]
  - Oropharyngeal pain [None]
